FAERS Safety Report 6726386-0 (Version None)
Quarter: 2010Q2

REPORT INFORMATION
  Report Type: 
  Country: None (occurrence: None)
  Receive Date: 20100514
  Receipt Date: 20100506
  Transmission Date: 20101027
  Serious: Yes (Life-Threatening)
  Sender: FDA-Public Use
  Company Number: B0648955A

PATIENT
  Age: 6 Year
  Sex: Female

DRUGS (1)
  1. CEFTAZIDINE [Suspect]
     Indication: PNEUMONIA
     Route: 042

REACTIONS (7)
  - ANAPHYLACTIC SHOCK [None]
  - CONVULSION [None]
  - CYANOSIS [None]
  - DYSPNOEA [None]
  - LARYNGEAL OEDEMA [None]
  - LOSS OF CONSCIOUSNESS [None]
  - WHEEZING [None]
